FAERS Safety Report 4504334-1 (Version None)
Quarter: 2004Q4

REPORT INFORMATION
  Report Type: 
  Country: None (occurrence: None)
  Receive Date: 20041118
  Receipt Date: 20041109
  Transmission Date: 20050328
  Serious: Yes (Hospitalization)
  Sender: FDA-Public Use
  Company Number: FR-BRISTOL-MYERS SQUIBB COMPANY-12759205

PATIENT
  Age: 88 Year
  Sex: Female

DRUGS (6)
  1. CAPTEA [Suspect]
     Route: 048
     Dates: end: 20021224
  2. DIGOXIN [Suspect]
     Route: 042
     Dates: start: 20021224, end: 20021224
  3. TRIMETAZIDINE [Suspect]
     Route: 048
     Dates: end: 20021224
  4. DRIPTANE [Suspect]
     Route: 048
     Dates: end: 20021224
  5. CAPTOPRIL [Suspect]
     Route: 048
     Dates: end: 20021227
  6. HALDOL [Suspect]
     Route: 048
     Dates: start: 20021224, end: 20021224

REACTIONS (2)
  - DEHYDRATION [None]
  - ORTHOSTATIC HYPOTENSION [None]
